FAERS Safety Report 10905086 (Version 1)
Quarter: 2015Q1

REPORT INFORMATION
  Report Type: Spontaneous
  Country: US (occurrence: None)
  Receive Date: 20150309
  Receipt Date: 20150309
  Transmission Date: 20150721
  Serious: Yes (Hospitalization, Other)
  Sender: FDA-Public Use
  Company Number: None

PATIENT
  Age: 47 Year
  Sex: Female

DRUGS (3)
  1. AMPYRA [Suspect]
     Active Substance: DALFAMPRIDINE
     Indication: MULTIPLE SCLEROSIS
     Route: 048
     Dates: start: 201406, end: 201407
  2. OXYBUTYNIN [Concomitant]
     Active Substance: OXYBUTYNIN
  3. CLOBETASOL 0.05% OINT [Concomitant]

REACTIONS (19)
  - Influenza [None]
  - Asthenia [None]
  - Multiple sclerosis [None]
  - Muscular weakness [None]
  - Pyrexia [None]
  - Wheelchair user [None]
  - Rash [None]
  - Vision blurred [None]
  - Abdominal pain upper [None]
  - Myopathy [None]
  - Alanine aminotransferase abnormal [None]
  - Swelling [None]
  - Aspartate aminotransferase abnormal [None]
  - Peripheral swelling [None]
  - Insomnia [None]
  - Dermatomyositis [None]
  - Red blood cell sedimentation rate abnormal [None]
  - Fatigue [None]
  - Myalgia [None]

NARRATIVE: CASE EVENT DATE: 20140716
